FAERS Safety Report 9558788 (Version 4)
Quarter: 2014Q2

REPORT INFORMATION
  Report Type: Spontaneous
  Country: US (occurrence: US)
  Receive Date: 20130926
  Receipt Date: 20140512
  Transmission Date: 20141212
  Serious: Yes (Hospitalization)
  Sender: FDA-Public Use
  Company Number: US-BIOGENIDEC-2013BI047435

PATIENT
  Age: 66 Year
  Sex: Female

DRUGS (10)
  1. TECFIDERA [Suspect]
     Indication: MULTIPLE SCLEROSIS
     Route: 048
     Dates: start: 20130504
  2. PREVAGEN [Concomitant]
  3. TRAMADOL-ACETAMINOPHEN [Concomitant]
  4. CALAMINE [Concomitant]
  5. ALEVE [Concomitant]
  6. IBUPROFEN [Concomitant]
  7. BENICAR [Concomitant]
  8. CALCIUM [Concomitant]
  9. DHFA [Concomitant]
  10. LIPOIC ACID [Concomitant]

REACTIONS (7)
  - Knee arthroplasty [Recovered/Resolved]
  - Flushing [Unknown]
  - Burning sensation [Unknown]
  - Miliaria [Unknown]
  - Pruritus [Unknown]
  - Rash [Unknown]
  - Arthritis [Not Recovered/Not Resolved]
